FAERS Safety Report 25280486 (Version 5)
Quarter: 2025Q3

REPORT INFORMATION
  Report Type: Spontaneous
  Country: US (occurrence: US)
  Receive Date: 20250508
  Receipt Date: 20250711
  Transmission Date: 20251021
  Serious: No
  Sender: VIIV
  Company Number: US-ViiV Healthcare-123186

PATIENT
  Age: 67 Year
  Sex: Male

DRUGS (4)
  1. CABENUVA [Suspect]
     Active Substance: CABOTEGRAVIR\RILPIVIRINE
     Indication: HIV infection
  2. CABENUVA [Suspect]
     Active Substance: CABOTEGRAVIR\RILPIVIRINE
  3. CABENUVA [Suspect]
     Active Substance: CABOTEGRAVIR\RILPIVIRINE
  4. TRUVADA [Concomitant]
     Active Substance: EMTRICITABINE\TENOFOVIR DISOPROXIL FUMARATE
     Indication: HIV infection

REACTIONS (6)
  - Injection site pain [Not Recovered/Not Resolved]
  - Injection site mass [Recovering/Resolving]
  - Discomfort [Not Recovered/Not Resolved]
  - Feeling abnormal [Unknown]
  - Sleep disorder due to a general medical condition [Unknown]
  - Product administered at inappropriate site [Unknown]

NARRATIVE: CASE EVENT DATE: 20241223
